FAERS Safety Report 7324047-0 (Version None)
Quarter: 2011Q1

REPORT INFORMATION
  Report Type: 
  Country: None (occurrence: None)
  Receive Date: 20110301
  Receipt Date: 20110222
  Transmission Date: 20110831
  Serious: Yes (Hospitalization, Other)
  Sender: FDA-Public Use
  Company Number: US-ABBOTT-11P-163-0707082-00

PATIENT
  Sex: Female

DRUGS (2)
  1. UNKNOWN STEROIDS [Suspect]
     Indication: CROHN'S DISEASE
  2. SYNTHROID [Suspect]
     Indication: HYPOTHYROIDISM

REACTIONS (18)
  - MENORRHAGIA [None]
  - ABDOMINAL PAIN [None]
  - GASTRIC ULCER [None]
  - CANDIDIASIS [None]
  - RASH PRURITIC [None]
  - PAIN [None]
  - ABDOMINAL PAIN LOWER [None]
  - DIVERTICULITIS [None]
  - PERITONEAL ABSCESS [None]
  - VOCAL CORD POLYP [None]
  - DIARRHOEA [None]
  - IRRITABLE BOWEL SYNDROME [None]
  - OROPHARYNGEAL PAIN [None]
  - CHOLELITHIASIS [None]
  - BACK PAIN [None]
  - DIVERTICULAR PERFORATION [None]
  - CROHN'S DISEASE [None]
  - RASH [None]
